FAERS Safety Report 11608750 (Version 1)
Quarter: 2015Q4

REPORT INFORMATION
  Report Type: Spontaneous
  Country: US (occurrence: US)
  Receive Date: 20151007
  Receipt Date: 20151007
  Transmission Date: 20160304
  Serious: No
  Sender: FDA-Public Use
  Company Number: US-ACTELION PHARMACEUTICALS US, INC.-A-NJ2015-125109

PATIENT
  Age: 60 Year
  Sex: Female

DRUGS (2)
  1. VELETRI [Suspect]
     Active Substance: EPOPROSTENOL
     Indication: PULMONARY ARTERIAL HYPERTENSION
     Dosage: 20 NG/KG, PER MIN
     Route: 042
     Dates: start: 20150619
  2. OXYGEN. [Concomitant]
     Active Substance: OXYGEN
     Dosage: 6 L, UNK

REACTIONS (2)
  - Nasopharyngitis [Unknown]
  - Dyspnoea [Unknown]
